FAERS Safety Report 25226750 (Version 7)
Quarter: 2025Q4

REPORT INFORMATION
  Report Type: Report from Study
  Country: US (occurrence: US)
  Receive Date: 20250422
  Receipt Date: 20251218
  Transmission Date: 20260117
  Serious: Yes (Hospitalization, Other)
  Sender: TAKEDA
  Company Number: US-TAKEDA-2024TUS006744

PATIENT
  Age: 41 Year
  Sex: Female
  Weight: 99.773 kg

DRUGS (50)
  1. VELAGLUCERASE ALFA [Suspect]
     Active Substance: VELAGLUCERASE ALFA
     Indication: Gaucher^s disease
     Dosage: UNK UNK, Q2WEEKS
     Dates: start: 20150501
  2. VELAGLUCERASE ALFA [Suspect]
     Active Substance: VELAGLUCERASE ALFA
     Dosage: 6486 INTERNATIONAL UNIT, Q2WEEKS
     Dates: start: 20181112
  3. VELAGLUCERASE ALFA [Suspect]
     Active Substance: VELAGLUCERASE ALFA
     Dosage: 7200 INTERNATIONAL UNIT, Q2WEEKS
  4. VELAGLUCERASE ALFA [Suspect]
     Active Substance: VELAGLUCERASE ALFA
     Dosage: 600 MILLIGRAM/KILOGRAM, Q2WEEKS
  5. VELAGLUCERASE ALFA [Suspect]
     Active Substance: VELAGLUCERASE ALFA
     Dosage: 600 MILLIGRAM/KILOGRAM, Q2WEEKS
  6. VELAGLUCERASE ALFA [Suspect]
     Active Substance: VELAGLUCERASE ALFA
     Dosage: 7200 INTERNATIONAL UNIT, Q2WEEKS
  7. DIPHENHYDRAMINE [Concomitant]
     Active Substance: DIPHENHYDRAMINE
     Dosage: UNK
  8. HEPARIN [Concomitant]
     Active Substance: HEPARIN SODIUM
     Dosage: UNK
  9. SODIUM CHLORIDE [Concomitant]
     Active Substance: SODIUM CHLORIDE
     Dosage: UNK
  10. SODIUM CHLORIDE [Concomitant]
     Active Substance: SODIUM CHLORIDE
     Dosage: UNK
  11. ONDANSETRON HYDROCHLORIDE [Concomitant]
     Active Substance: ONDANSETRON HYDROCHLORIDE
     Indication: Nausea
     Dosage: UNK
  12. ONDANSETRON HYDROCHLORIDE [Concomitant]
     Active Substance: ONDANSETRON HYDROCHLORIDE
     Dosage: 8 MILLIGRAM
  13. ONDANSETRON HYDROCHLORIDE [Concomitant]
     Active Substance: ONDANSETRON HYDROCHLORIDE
     Dosage: UNK UNK, Q8HR
     Dates: start: 20130408
  14. ONDANSETRON HYDROCHLORIDE [Concomitant]
     Active Substance: ONDANSETRON HYDROCHLORIDE
     Dosage: UNK UNK, Q8HR
     Dates: start: 20130823
  15. ONDANSETRON HYDROCHLORIDE [Concomitant]
     Active Substance: ONDANSETRON HYDROCHLORIDE
     Dosage: UNK UNK, Q8HR
     Dates: start: 20211111
  16. ONDANSETRON HYDROCHLORIDE [Concomitant]
     Active Substance: ONDANSETRON HYDROCHLORIDE
     Dosage: UNK UNK, Q8HR
     Dates: start: 20221209
  17. ONDANSETRON HYDROCHLORIDE [Concomitant]
     Active Substance: ONDANSETRON HYDROCHLORIDE
     Dosage: UNK UNK, Q8HR
     Dates: start: 20230203
  18. ONDANSETRON HYDROCHLORIDE [Concomitant]
     Active Substance: ONDANSETRON HYDROCHLORIDE
     Dosage: UNK UNK, Q8HR
     Dates: start: 20231229
  19. STERILE WATER [Concomitant]
     Active Substance: WATER
     Dosage: UNK
  20. EPINEPHRINE [Concomitant]
     Active Substance: EPINEPHRINE
     Dosage: UNK
  21. TRAMADOL HCL [Concomitant]
     Active Substance: TRAMADOL HYDROCHLORIDE
     Dosage: UNK
  22. TRAMADOL HCL [Concomitant]
     Active Substance: TRAMADOL HYDROCHLORIDE
     Dosage: UNK, Q6HR
     Dates: start: 20180727
  23. MOUNJARO [Concomitant]
     Active Substance: TIRZEPATIDE
     Dosage: UNK
  24. ZANAFLEX [Concomitant]
     Active Substance: TIZANIDINE HYDROCHLORIDE
     Dosage: 4 MILLIGRAM, QD
     Dates: start: 20141218
  25. BENADRYL [Concomitant]
     Active Substance: DIPHENHYDRAMINE HYDROCHLORIDE
     Dosage: UNK
  26. PROCHLORPERAZINE MALEATE [Concomitant]
     Active Substance: PROCHLORPERAZINE MALEATE
     Indication: Nausea
     Dosage: UNK
  27. PROCHLORPERAZINE MALEATE [Concomitant]
     Active Substance: PROCHLORPERAZINE MALEATE
     Dosage: 10 MILLIGRAM
  28. ALBUTEROL SULFATE [Concomitant]
     Active Substance: ALBUTEROL SULFATE
     Dosage: UNK UNK, Q4HR
  29. EFFEXOR [Concomitant]
     Active Substance: VENLAFAXINE HYDROCHLORIDE
     Dosage: UNK UNK, QD
  30. EPIPEN [Concomitant]
     Active Substance: EPINEPHRINE
     Dosage: UNK
  31. PREDNISONE [Concomitant]
     Active Substance: PREDNISONE
     Indication: Surgery
     Dosage: UNK
  32. BUTYLSCOPOLAMINE BROMIDE [Concomitant]
     Active Substance: BUTYLSCOPOLAMINE BROMIDE
     Dosage: UNK
  33. TRAMADOL [Concomitant]
     Active Substance: TRAMADOL
     Indication: Pain
     Dosage: UNK UNK, Q6HR
     Dates: start: 20150529
  34. TRAMADOL [Concomitant]
     Active Substance: TRAMADOL
     Dosage: UNK UNK, Q6HR
     Dates: start: 20150626
  35. TRAMADOL [Concomitant]
     Active Substance: TRAMADOL
     Dosage: UNK UNK, Q6HR
     Dates: start: 20151116
  36. TRAMADOL [Concomitant]
     Active Substance: TRAMADOL
     Dosage: UNK UNK, Q6HR
     Dates: start: 20170614
  37. TRAMADOL [Concomitant]
     Active Substance: TRAMADOL
     Dosage: UNK UNK, Q6HR
     Dates: start: 20180418
  38. TRAMADOL [Concomitant]
     Active Substance: TRAMADOL
     Dosage: UNK UNK, Q6HR
     Dates: start: 20180718
  39. TRAMADOL [Concomitant]
     Active Substance: TRAMADOL
     Dosage: UNK UNK, Q6HR
     Dates: start: 20180803
  40. TRAMADOL [Concomitant]
     Active Substance: TRAMADOL
     Dosage: UNK UNK, Q12H
     Dates: start: 20230817
  41. TRAMADOL [Concomitant]
     Active Substance: TRAMADOL
     Dosage: UNK UNK, Q12H
     Dates: start: 20241016
  42. TRAMADOL [Concomitant]
     Active Substance: TRAMADOL
     Dosage: UNK UNK, Q12H
     Dates: start: 20241104
  43. VERAPAMIL [Concomitant]
     Active Substance: VERAPAMIL HYDROCHLORIDE
     Indication: Blood pressure management
     Dosage: UNK UNK, QD
     Dates: start: 20141218
  44. ZOFRAN [Concomitant]
     Active Substance: ONDANSETRON HYDROCHLORIDE
     Dosage: UNK UNK, Q8HR
     Dates: start: 20140307
  45. ZOFRAN [Concomitant]
     Active Substance: ONDANSETRON HYDROCHLORIDE
     Dosage: UNK UNK, Q8HR
     Dates: start: 20140613
  46. ZOFRAN [Concomitant]
     Active Substance: ONDANSETRON HYDROCHLORIDE
     Dosage: UNK UNK, Q8HR
     Dates: start: 20150331
  47. ZOFRAN [Concomitant]
     Active Substance: ONDANSETRON HYDROCHLORIDE
     Dosage: UNK UNK, Q8HR
     Dates: start: 20150626
  48. PEPCID [Concomitant]
     Active Substance: FAMOTIDINE
     Dosage: UNK
  49. STERILE WATER [Concomitant]
     Active Substance: WATER
     Indication: Lipidosis
     Dosage: UNK
  50. STERILE WATER [Concomitant]
     Active Substance: WATER
     Indication: Gaucher^s disease

REACTIONS (37)
  - Gastrointestinal haemorrhage [Unknown]
  - Thrombocytopenia [Recovered/Resolved]
  - Deep vein thrombosis [Unknown]
  - Embolism venous [Unknown]
  - Sepsis [Unknown]
  - Appendicitis [Unknown]
  - Type 2 diabetes mellitus [Unknown]
  - Abdominal pain [Unknown]
  - Dermatitis contact [Unknown]
  - Anaemia folate deficiency [Unknown]
  - Flank pain [Unknown]
  - Hepatic enzyme increased [Unknown]
  - Haemorrhoids [Unknown]
  - Obesity [Unknown]
  - Anal fissure [Unknown]
  - Vitamin B12 deficiency [Unknown]
  - Migraine [Unknown]
  - Dyslipidaemia [Unknown]
  - Erythema [Unknown]
  - Skin burning sensation [Unknown]
  - Skin warm [Unknown]
  - Product dose omission issue [Unknown]
  - Inappropriate schedule of product administration [Unknown]
  - Insurance issue [Unknown]
  - Product use issue [Unknown]
  - Anaemia [Recovered/Resolved]
  - Weight decreased [Unknown]
  - Musculoskeletal pain [Unknown]
  - Eczema [Unknown]
  - Splenomegaly [Unknown]
  - Gastrooesophageal reflux disease [Unknown]
  - Infection [Unknown]
  - Skin injury [Unknown]
  - Speech disorder [Unknown]
  - Dysphonia [Unknown]
  - Bone pain [Recovering/Resolving]
  - Arthralgia [Recovering/Resolving]

NARRATIVE: CASE EVENT DATE: 20240501
